FAERS Safety Report 21928428 (Version 1)
Quarter: 2023Q1

REPORT INFORMATION
  Report Type: Spontaneous
  Country: US (occurrence: US)
  Receive Date: 20230130
  Receipt Date: 20230130
  Transmission Date: 20230417
  Serious: No
  Sender: FDA-Public Use
  Company Number: US-JNJFOC-20230149851

PATIENT
  Age: 74 Year
  Sex: Female

DRUGS (2)
  1. PEPCID AC MAXIMUM STRENGTH [Suspect]
     Active Substance: FAMOTIDINE
     Indication: Gastrooesophageal reflux disease
     Dosage: I AM USING 1 TABLET I AM USING IT TWICE A DAY, 1 DURING THE DAY AND 1 AT NIGHT
     Route: 065
  2. PEPCID AC MAXIMUM STRENGTH [Suspect]
     Active Substance: FAMOTIDINE
     Indication: Gastrooesophageal reflux disease
     Dosage: I AM USING 1 TABLET I AM USING IT TWICE A DAY, 1 DURING THE DAY AND 1 AT NIGHT
     Route: 065

REACTIONS (1)
  - Hypersensitivity [Unknown]

NARRATIVE: CASE EVENT DATE: 20230111
